FAERS Safety Report 25409376 (Version 1)
Quarter: 2025Q2

REPORT INFORMATION
  Report Type: Spontaneous
  Country: FR (occurrence: FR)
  Receive Date: 20250607
  Receipt Date: 20250607
  Transmission Date: 20250717
  Serious: Yes (Other)
  Sender: AUROBINDO
  Company Number: FR-AUROBINDO-AUR-APL-2022-050045

PATIENT
  Age: 55 Year
  Sex: Male

DRUGS (18)
  1. PREGABALIN [Suspect]
     Active Substance: PREGABALIN
     Indication: Neuralgia
     Route: 065
  2. PREGABALIN [Suspect]
     Active Substance: PREGABALIN
     Dosage: 200 MILLIGRAM, TWO TIMES A DAY
     Route: 065
     Dates: end: 202001
  3. OXYCODONE [Suspect]
     Active Substance: OXYCODONE
     Indication: Neuralgia
     Route: 065
  4. OXYCODONE [Suspect]
     Active Substance: OXYCODONE
     Route: 065
     Dates: start: 202001
  5. HYDROMORPHONE [Suspect]
     Active Substance: HYDROMORPHONE
     Indication: Neuralgia
     Dosage: 40 MILLIGRAM, TWO TIMES A DAY
     Route: 048
     Dates: start: 202003
  6. METHADONE [Suspect]
     Active Substance: METHADONE HYDROCHLORIDE
     Indication: Neuralgia
     Route: 065
  7. METHADONE [Suspect]
     Active Substance: METHADONE HYDROCHLORIDE
     Dosage: 10 MILLIGRAM, 3 TIMES A DAY
     Route: 065
  8. METHADONE [Suspect]
     Active Substance: METHADONE HYDROCHLORIDE
     Dosage: 80 MILLIGRAM, ONCE A DAY
     Route: 065
     Dates: start: 1996, end: 2017
  9. METHADONE [Suspect]
     Active Substance: METHADONE HYDROCHLORIDE
     Route: 065
  10. METHADONE [Suspect]
     Active Substance: METHADONE HYDROCHLORIDE
     Route: 065
     Dates: start: 1996, end: 2017
  11. METHADONE [Suspect]
     Active Substance: METHADONE HYDROCHLORIDE
     Dosage: 5 MILLIGRAM, 5 TIMES A DAY
     Route: 065
  12. MORPHINE [Suspect]
     Active Substance: MORPHINE
     Indication: Neuralgia
     Route: 048
     Dates: start: 201909
  13. MORPHINE [Suspect]
     Active Substance: MORPHINE
     Dosage: 240 MILLIGRAM, TWO TIMES A DAY
     Route: 048
  14. MORPHINE [Suspect]
     Active Substance: MORPHINE
     Route: 042
  15. MORPHINE [Suspect]
     Active Substance: MORPHINE
     Route: 048
  16. MORPHINE [Suspect]
     Active Substance: MORPHINE
     Route: 048
  17. MORPHINE [Suspect]
     Active Substance: MORPHINE
     Route: 048
     Dates: start: 2019
  18. MORPHINE [Suspect]
     Active Substance: MORPHINE
     Route: 065

REACTIONS (1)
  - Treatment failure [Unknown]
